FAERS Safety Report 10020568 (Version 1)
Quarter: 2014Q1

REPORT INFORMATION
  Report Type: Spontaneous
  Country: NL (occurrence: NL)
  Receive Date: 20140319
  Receipt Date: 20140319
  Transmission Date: 20141002
  Serious: Yes (Death)
  Sender: FDA-Public Use
  Company Number: NL-AMGEN-NLDSP2014018771

PATIENT
  Age: 46 Year
  Sex: Female

DRUGS (1)
  1. NEULASTA [Suspect]
     Indication: PROPHYLAXIS
     Dosage: 10 MG/ML,0.6ML EVERY 3 WEEKS
     Route: 058
     Dates: start: 20130328, end: 20140312

REACTIONS (1)
  - Death [Fatal]
